FAERS Safety Report 15490891 (Version 4)
Quarter: 2019Q2

REPORT INFORMATION
  Report Type: Report from Study
  Country: DE (occurrence: DE)
  Receive Date: 20181012
  Receipt Date: 20190507
  Transmission Date: 20190711
  Serious: Yes (Death, Hospitalization, Other)
  Sender: FDA-Public Use
  Company Number: DE-BRISTOL-MYERS SQUIBB COMPANY-BMS-2018-069887

PATIENT
  Age: 59 Year
  Sex: Male

DRUGS (6)
  1. HYDROCHLOROTHIAZID [Concomitant]
     Active Substance: HYDROCHLOROTHIAZIDE
     Indication: GASTROINTESTINAL DISORDER
     Dosage: UNK
     Route: 065
  2. ASPIRIN. [Concomitant]
     Active Substance: ASPIRIN
     Indication: PROPHYLAXIS
     Dosage: UNK
     Route: 065
  3. AMLODIPIN                          /00972401/ [Concomitant]
     Active Substance: AMLODIPINE BESYLATE
     Indication: CARDIOVASCULAR DISORDER
     Dosage: UNK
     Route: 065
  4. SIMVASTATIN. [Concomitant]
     Active Substance: SIMVASTATIN
     Indication: PRODUCT USED FOR UNKNOWN INDICATION
     Dosage: UNK
     Route: 065
  5. NIVOLUMAB [Suspect]
     Active Substance: NIVOLUMAB
     Indication: SQUAMOUS CELL CARCINOMA OF LUNG
     Dosage: 3 MG/KG, Q2WK
     Route: 042
     Dates: start: 20180206, end: 20180719
  6. RAMIPRIL. [Concomitant]
     Active Substance: RAMIPRIL
     Indication: CARDIOVASCULAR DISORDER
     Dosage: UNK
     Route: 065

REACTIONS (5)
  - Metastases to central nervous system [Not Recovered/Not Resolved]
  - Rash macular [Recovering/Resolving]
  - Basal ganglia haemorrhage [Not Recovered/Not Resolved]
  - Malignant neoplasm progression [Fatal]
  - Acute kidney injury [Fatal]

NARRATIVE: CASE EVENT DATE: 20180502
